FAERS Safety Report 13047738 (Version 2)
Quarter: 2016Q4

REPORT INFORMATION
  Report Type: Spontaneous
  Country: JP (occurrence: JP)
  Receive Date: 20161220
  Receipt Date: 20161229
  Transmission Date: 20170207
  Serious: Yes (Hospitalization)
  Sender: FDA-Public Use
  Company Number: JP-SA-2016SA230787

PATIENT
  Age: 75 Year
  Sex: Male

DRUGS (2)
  1. JEVTANA [Suspect]
     Active Substance: CABAZITAXEL
     Indication: PROSTATE CANCER
     Dosage: 20 MG/M2/CYCLE
     Route: 042
     Dates: start: 20161027, end: 20161027
  2. JEVTANA [Suspect]
     Active Substance: CABAZITAXEL
     Indication: PROSTATE CANCER
     Dosage: 20 MG/M2/CYCLE
     Route: 042

REACTIONS (2)
  - Respiratory failure [Recovered/Resolved]
  - Dyspnoea exertional [Recovered/Resolved]
